FAERS Safety Report 9886866 (Version 2)
Quarter: 2014Q1

REPORT INFORMATION
  Report Type: Report from Study
  Country: CA (occurrence: CA)
  Receive Date: 20140210
  Receipt Date: 20140212
  Transmission Date: 20141002
  Serious: Yes (Death)
  Sender: FDA-Public Use
  Company Number: CA-ABBVIE-14P-028-1199186-00

PATIENT
  Sex: Male

DRUGS (2)
  1. HUMIRA [Suspect]
     Indication: CROHN^S DISEASE
     Route: 058
     Dates: start: 20120316
  2. HUMIRA [Suspect]
     Indication: GASTROINTESTINAL FISTULA

REACTIONS (2)
  - Malaise [Fatal]
  - Abdominal pain upper [Fatal]
